FAERS Safety Report 17346036 (Version 5)
Quarter: 2020Q3

REPORT INFORMATION
  Report Type: Report from Study
  Country: US (occurrence: US)
  Receive Date: 20200129
  Receipt Date: 20200430
  Transmission Date: 20201105
  Serious: Yes (Hospitalization)
  Sender: FDA-Public Use
  Company Number: US-ALNYLAM PHARMACEUTICALS, INC.-ALN-2020-000095

PATIENT
  Age: 30 Year
  Sex: Female
  Weight: 72 kg

DRUGS (22)
  1. ZOFRAN [Concomitant]
     Active Substance: ONDANSETRON HYDROCHLORIDE
     Indication: NAUSEA
     Dosage: 4 MILLIGRAM, PRN (8HRS)
     Route: 048
     Dates: start: 20190420
  2. PANHEMATIN [Concomitant]
     Active Substance: HEMIN
     Indication: PORPHYRIA ACUTE
     Dosage: 4 MILLIGRAM/KILOGRAM, QD
     Route: 042
     Dates: start: 20191231, end: 20200103
  3. LORAZEPAM. [Concomitant]
     Active Substance: LORAZEPAM
     Indication: PORPHYRIA ACUTE
     Dosage: UNK
     Route: 042
     Dates: start: 20191226, end: 20200604
  4. GIVOSIRAN. [Suspect]
     Active Substance: GIVOSIRAN
     Indication: PORPHYRIA ACUTE
     Dosage: 2.5 MILLIGRAM/KILOGRAM, MONTHLY
     Route: 058
     Dates: start: 20180507, end: 20200117
  5. ZOFRAN [Concomitant]
     Active Substance: ONDANSETRON HYDROCHLORIDE
     Indication: PREMEDICATION
     Dosage: 4 ? 8 MILLIGRAM, PRN
     Route: 048
  6. NALOXONE [Concomitant]
     Active Substance: NALOXONE
     Indication: PORPHYRIA ACUTE
     Dosage: 0.1 MILLIGRAM, PRN
     Route: 042
     Dates: start: 20191226, end: 20200604
  7. CYCLOBENZAPRINE. [Concomitant]
     Active Substance: CYCLOBENZAPRINE
     Indication: PORPHYRIA ACUTE
     Dosage: UNK
     Route: 042
     Dates: start: 20191226, end: 20200104
  8. BENADRYL [Concomitant]
     Active Substance: DIPHENHYDRAMINE HYDROCHLORIDE
     Indication: PREMEDICATION
     Dosage: 50 MILLIGRAM, PRN
     Route: 042
  9. DILAUDID [Concomitant]
     Active Substance: HYDROMORPHONE HYDROCHLORIDE
     Indication: TRISMUS
     Dosage: 2 UNK
     Route: 042
     Dates: start: 20191226, end: 20200604
  10. MELATONIN [Concomitant]
     Active Substance: MELATONIN
     Indication: PROPHYLAXIS
     Dosage: 3 MILLIGRAM, AS NEEDED AT BEDTIME
     Route: 048
     Dates: start: 20190813
  11. GABAPENTIN. [Concomitant]
     Active Substance: GABAPENTIN
     Indication: PORPHYRIA ACUTE
     Dosage: 300 MILLIGRAM, TID
     Route: 048
     Dates: start: 20190813
  12. XARELTO [Concomitant]
     Active Substance: RIVAROXABAN
     Indication: DEEP VEIN THROMBOSIS
     Dosage: 20 MILLIGRAM, BID
     Route: 048
     Dates: start: 20191112, end: 20200118
  13. PANHEMATIN [Concomitant]
     Active Substance: HEMIN
     Dosage: UNK
  14. PANHEMATIN [Concomitant]
     Active Substance: HEMIN
     Dosage: UNK
  15. DEXTROSE. [Concomitant]
     Active Substance: DEXTROSE
     Indication: PORPHYRIA ACUTE
     Dosage: 1000 MILLILITER
     Route: 042
     Dates: start: 20191226, end: 20200104
  16. ENOXAPARIN [Concomitant]
     Active Substance: ENOXAPARIN
     Indication: PORPHYRIA ACUTE
     Dosage: 40 MILLIGRAM, QD
     Route: 058
     Dates: start: 20191226, end: 20200104
  17. BENADRYL [Concomitant]
     Active Substance: DIPHENHYDRAMINE HYDROCHLORIDE
     Indication: PAIN
     Dosage: 25 MILLIGRAM, PRN
     Route: 048
     Dates: start: 20180420, end: 20180503
  18. ZOFRAN [Concomitant]
     Active Substance: ONDANSETRON HYDROCHLORIDE
     Indication: VOMITING
  19. PANHEMATIN [Concomitant]
     Active Substance: HEMIN
     Dosage: 4 MILLIGRAM/KILOGRAM, QD
     Route: 042
     Dates: start: 20191226, end: 20191230
  20. TYLENOL [Concomitant]
     Active Substance: ACETAMINOPHEN
     Indication: PREMEDICATION
     Dosage: 250 MILLIGRAM, PRN
     Route: 048
  21. DILAUDID [Concomitant]
     Active Substance: HYDROMORPHONE HYDROCHLORIDE
     Indication: PORPHYRIA ACUTE
     Dosage: 2 MILLIGRAM, PRN
     Route: 048
     Dates: start: 20190419, end: 20190420
  22. DIAZEPAM. [Concomitant]
     Active Substance: DIAZEPAM
     Indication: PORPHYRIA ACUTE
     Dosage: UNK
     Route: 042
     Dates: start: 20191226, end: 20200104

REACTIONS (2)
  - Trismus [Recovering/Resolving]
  - Pain in jaw [Recovering/Resolving]

NARRATIVE: CASE EVENT DATE: 20200117
